FAERS Safety Report 12082903 (Version 1)
Quarter: 2016Q1

REPORT INFORMATION
  Report Type: Spontaneous
  Country: US (occurrence: None)
  Receive Date: 20160216
  Receipt Date: 20160216
  Transmission Date: 20160526
  Serious: No
  Sender: FDA-Public Use
  Company Number: None

PATIENT
  Age: 93 Year
  Sex: Female
  Weight: 48.99 kg

DRUGS (11)
  1. SYNTHROID [Concomitant]
     Active Substance: LEVOTHYROXINE SODIUM
  2. CALCIUM [Concomitant]
     Active Substance: CALCIUM
  3. FOMAX [Concomitant]
  4. LOVASTATIN. [Concomitant]
     Active Substance: LOVASTATIN
  5. TOPROL XL [Concomitant]
     Active Substance: METOPROLOL SUCCINATE
  6. NORVASC [Concomitant]
     Active Substance: AMLODIPINE BESYLATE
  7. ASPIRIN. [Concomitant]
     Active Substance: ASPIRIN
  8. CRESTOR [Suspect]
     Active Substance: ROSUVASTATIN CALCIUM
     Indication: BLOOD CHOLESTEROL INCREASED
     Dosage: 1/2 TABLET AT BEDTIME BY MOUTH
     Route: 048
     Dates: end: 20151210
  9. FISH OIL [Concomitant]
     Active Substance: FISH OIL
  10. CALCIUM + MINERALS [Concomitant]
  11. COZAAR [Concomitant]
     Active Substance: LOSARTAN POTASSIUM

REACTIONS (4)
  - Swelling [None]
  - Arthralgia [None]
  - Pain [None]
  - Myalgia [None]

NARRATIVE: CASE EVENT DATE: 20151208
